FAERS Safety Report 6292878-4 (Version None)
Quarter: 2009Q3

REPORT INFORMATION
  Report Type: 
  Country: None (occurrence: None)
  Receive Date: 20090731
  Receipt Date: 20090729
  Transmission Date: 20100115
  Serious: Yes (Death, Hospitalization)
  Sender: FDA-Public Use
  Company Number: PHHY2008US31900

PATIENT
  Sex: Female

DRUGS (3)
  1. GLEEVEC [Suspect]
     Indication: PULMONARY VENO-OCCLUSIVE DISEASE
     Dosage: 400 MG, QD
     Route: 048
     Dates: start: 20081114, end: 20081215
  2. DIGOXIN [Concomitant]
     Dosage: 0.25 MG DAILY
     Route: 048
  3. FUROSEMIDE [Concomitant]
     Indication: OEDEMA
     Dosage: 40 MG, QD
     Route: 048
     Dates: start: 20081107

REACTIONS (3)
  - DISEASE PROGRESSION [None]
  - DYSPNOEA EXERTIONAL [None]
  - RIGHT VENTRICULAR FAILURE [None]
